FAERS Safety Report 20620686 (Version 1)
Quarter: 2022Q1

REPORT INFORMATION
  Report Type: Spontaneous
  Country: HU (occurrence: HU)
  Receive Date: 20220322
  Receipt Date: 20220322
  Transmission Date: 20220423
  Serious: Yes (Death, Hospitalization)
  Sender: FDA-Public Use
  Company Number: HU-PERRIGO-22HU003828

PATIENT
  Age: 51 Year
  Sex: Male

DRUGS (1)
  1. ACETAMINOPHEN [Suspect]
     Active Substance: ACETAMINOPHEN
     Indication: Product used for unknown indication
     Dosage: UNKNOWN, UNKNOWN
     Route: 065

REACTIONS (5)
  - Hepatic failure [Fatal]
  - Metabolic acidosis [Fatal]
  - Pancreatitis [Fatal]
  - Pneumonia [Fatal]
  - Cardio-respiratory arrest [Fatal]

NARRATIVE: CASE EVENT DATE: 20191201
